FAERS Safety Report 26094196 (Version 2)
Quarter: 2025Q4

REPORT INFORMATION
  Report Type: Report from Study
  Country: US (occurrence: US)
  Receive Date: 20251126
  Receipt Date: 20251210
  Transmission Date: 20260117
  Serious: Yes (Other)
  Sender: ALEXION PHARMACEUTICALS
  Company Number: US-ASTRAZENECA-202511NAM020062US

PATIENT
  Age: 36 Year
  Sex: Female

DRUGS (1)
  1. STRENSIQ [Suspect]
     Active Substance: ASFOTASE ALFA
     Indication: Phosphorus metabolism disorder
     Dosage: 62 MILLIGRAM   SIX TIMES PER WEEK AS DIRECTED. ROTATE INJECTION SITES
     Route: 065

REACTIONS (7)
  - Anaemia [Recovered/Resolved]
  - Rash [Unknown]
  - Arthralgia [Unknown]
  - Tendon pain [Unknown]
  - Iliotibial band syndrome [Unknown]
  - Pain in extremity [Unknown]
  - Injection site atrophy [Unknown]

NARRATIVE: CASE EVENT DATE: 20250401
